FAERS Safety Report 10869084 (Version 1)
Quarter: 2015Q1

REPORT INFORMATION
  Report Type: Spontaneous
  Country: US (occurrence: US)
  Receive Date: 20150225
  Receipt Date: 20150225
  Transmission Date: 20150721
  Serious: Yes (Other)
  Sender: FDA-Public Use
  Company Number: US-CELGENEUS-USA-2015013009

PATIENT
  Sex: Female
  Weight: 74.64 kg

DRUGS (1)
  1. REVLIMID [Suspect]
     Active Substance: LENALIDOMIDE
     Indication: PLASMA CELL MYELOMA
     Dosage: 10 MILLIGRAM
     Route: 048
     Dates: start: 20140922

REACTIONS (3)
  - Vision blurred [Unknown]
  - Eye swelling [Recovered/Resolved with Sequelae]
  - Swelling face [Recovered/Resolved with Sequelae]
